FAERS Safety Report 8966342 (Version 2)
Quarter: 2013Q2

REPORT INFORMATION
  Report Type: Spontaneous
  Country: US (occurrence: US)
  Receive Date: 20121214
  Receipt Date: 20130404
  Transmission Date: 20140414
  Serious: Yes (Hospitalization)
  Sender: FDA-Public Use
  Company Number: US-GLAXOSMITHKLINE-A0838342A

PATIENT
  Age: 81 Year
  Sex: Female
  Weight: 70.5 kg

DRUGS (17)
  1. VENTOLIN HFA [Suspect]
     Indication: COUGH
     Dosage: 90MCG AS REQUIRED
     Route: 065
     Dates: start: 20090918
  2. PREDNISONE [Concomitant]
  3. METHADONE [Concomitant]
  4. PERCOCET [Concomitant]
  5. ADVAIR [Concomitant]
  6. SPIRIVA [Concomitant]
  7. LOSARTAN POTASSIUM [Concomitant]
  8. FUROSEMIDE [Concomitant]
  9. VITAMIN D [Concomitant]
  10. OMEGA 3 FISH OIL [Concomitant]
  11. LEVOXYL [Concomitant]
  12. CALCIUM CARBONATE [Concomitant]
  13. ASPIRIN EC [Concomitant]
  14. ALLOPURINOL [Concomitant]
  15. SINEMET [Concomitant]
  16. GABAPENTIN [Concomitant]
  17. TRIAMCINOLONE CREAM [Concomitant]

REACTIONS (4)
  - Chronic obstructive pulmonary disease [Recovering/Resolving]
  - Dyspnoea [Recovering/Resolving]
  - Abdominal discomfort [Unknown]
  - Bronchitis [Recovering/Resolving]
